FAERS Safety Report 6950724-7 (Version None)
Quarter: 2010Q3

REPORT INFORMATION
  Report Type: 
  Country: None (occurrence: None)
  Receive Date: 20100828
  Receipt Date: 20100220
  Transmission Date: 20110219
  Serious: No
  Sender: FDA-Public Use
  Company Number: US-ABBOTT-10P-163-0628592-00

PATIENT
  Sex: Male
  Weight: 112.14 kg

DRUGS (7)
  1. NIASPAN [Suspect]
     Indication: LOW DENSITY LIPOPROTEIN INCREASED
     Dates: start: 20100101
  2. ASPIRIN [Concomitant]
     Indication: PRODUCT USED FOR UNKNOWN INDICATION
     Dosage: TAKES 1 HR BEFORE TAKING NIASPAN COATED
  3. EXFORGE [Concomitant]
     Indication: HYPERTENSION
  4. EFFIENT [Concomitant]
     Indication: PLATELET AGGREGATION
  5. PRAVACHOL [Concomitant]
     Indication: PRODUCT USED FOR UNKNOWN INDICATION
     Dosage: EVERY NIGHT
  6. METOPROLOL TARTRATE [Concomitant]
     Indication: HYPERTENSION
     Dosage: EVERY NIGHT
  7. PRILOSEC [Concomitant]
     Indication: GASTROOESOPHAGEAL REFLUX DISEASE
     Dosage: EVERY NIGHT

REACTIONS (4)
  - ERYTHEMA [None]
  - FLUSHING [None]
  - PAIN [None]
  - SKIN BURNING SENSATION [None]
